FAERS Safety Report 8978310 (Version 1)
Quarter: 2012Q4

REPORT INFORMATION
  Report Type: 
  Country: GB (occurrence: GB)
  Receive Date: 20121221
  Receipt Date: 20121221
  Transmission Date: 20130627
  Serious: Yes (Other)
  Sender: FDA-Public Use
  Company Number: GB-MERCK-1212GBR007403

PATIENT
  Age: 80 Year
  Sex: Male
  Weight: 99.1 kg

DRUGS (18)
  1. SIMVASTATIN [Suspect]
     Indication: BLOOD CHOLESTEROL INCREASED
     Dosage: 40 mg, qd
     Route: 048
     Dates: start: 20080317, end: 20080528
  2. PRAVASTATIN SODIUM [Suspect]
     Indication: BLOOD CHOLESTEROL INCREASED
     Dosage: 20 mg, qd
     Dates: start: 20080731, end: 20090316
  3. ALENDRONIC ACID [Concomitant]
     Dosage: 1 DF, qw
  4. ASPIRIN [Concomitant]
     Dosage: 300 mg, qd
  5. BISOPROLOL [Concomitant]
     Dosage: 5 mg, qd
  6. UBIDECARENONE [Concomitant]
     Dosage: UNK
  7. DIPROBASE [Concomitant]
     Dosage: UNK
     Route: 061
  8. FINASTERIDE [Concomitant]
     Dosage: 5 mg, qd
  9. GLICLAZIDE [Concomitant]
     Dosage: 80 mg, qd
  10. PSYLLIUM HUSK [Concomitant]
     Dosage: UNK
  11. METFORMIN [Concomitant]
     Dosage: 500 mg, qd
  12. ACIDEX (CALCIUM CARBONATE (+) SODIUM ALGINATE (+) SODIUM BICARBONATE) [Concomitant]
     Dosage: UNK UNK, prn
  13. PREDNISOLONE [Concomitant]
     Dosage: 10 mg, UNK
  14. SALMETEROL [Concomitant]
     Dosage: UNK
     Route: 055
  15. SENNA [Concomitant]
     Dosage: 7.5 mg, qd
  16. TIOTROPIUM BROMIDE [Concomitant]
     Dosage: UNK UNK, qd
     Route: 055
  17. VENTOLIN (ALBUTEROL SULFATE) [Concomitant]
     Dosage: UNK
     Route: 055
  18. NIACIN [Concomitant]
     Dosage: UNK

REACTIONS (11)
  - Cognitive disorder [Not Recovered/Not Resolved]
  - Fatigue [Not Recovered/Not Resolved]
  - Malaise [Not Recovered/Not Resolved]
  - Insomnia [Not Recovered/Not Resolved]
  - Arthralgia [Not Recovered/Not Resolved]
  - Amnesia [Not Recovered/Not Resolved]
  - Mobility decreased [Not Recovered/Not Resolved]
  - Myalgia [Not Recovered/Not Resolved]
  - Muscular weakness [Not Recovered/Not Resolved]
  - Hypoaesthesia [Not Recovered/Not Resolved]
  - Feeling abnormal [Not Recovered/Not Resolved]
